FAERS Safety Report 16610513 (Version 1)
Quarter: 2019Q3

REPORT INFORMATION
  Report Type: Spontaneous
  Country: US (occurrence: US)
  Receive Date: 20190722
  Receipt Date: 20190722
  Transmission Date: 20191004
  Serious: No
  Sender: FDA-Public Use
  Company Number: US-OSMOTICA_PHARMACEUTICAL_US_LLC-POI0573201800268

PATIENT
  Sex: Female

DRUGS (7)
  1. DIVIGEL [Suspect]
     Active Substance: ESTRADIOL
     Dosage: ONE HALF OF A 1.0 MG PACK
     Route: 062
     Dates: start: 20181226
  2. PROGESTERONE. [Concomitant]
     Active Substance: PROGESTERONE
     Indication: MENOPAUSE
     Dosage: COMPOUNDED
  3. KLONOPIN [Concomitant]
     Active Substance: CLONAZEPAM
     Indication: ANXIETY
  4. SYNTHROID [Concomitant]
     Active Substance: LEVOTHYROXINE SODIUM
     Indication: HYPOTHYROIDISM
  5. DIVIGEL [Suspect]
     Active Substance: ESTRADIOL
     Indication: MENOPAUSAL SYMPTOMS
     Route: 062
     Dates: start: 2008, end: 2008
  6. DIVIGEL [Suspect]
     Active Substance: ESTRADIOL
     Dosage: ONE HALF OF A 1.0 MG PACK
     Route: 062
     Dates: start: 2008, end: 20181221
  7. DIVIGEL [Suspect]
     Active Substance: ESTRADIOL
     Route: 062
     Dates: start: 20181222, end: 20181225

REACTIONS (1)
  - Drug ineffective [Recovered/Resolved]

NARRATIVE: CASE EVENT DATE: 2008
